FAERS Safety Report 13032993 (Version 1)
Quarter: 2016Q4

REPORT INFORMATION
  Report Type: Report from Study
  Country: US (occurrence: US)
  Receive Date: 20161215
  Receipt Date: 20161215
  Transmission Date: 20170207
  Serious: Yes (Death, Other)
  Sender: FDA-Public Use
  Company Number: US-009507513-1611USA013947

PATIENT
  Age: 68 Year
  Sex: Male

DRUGS (1)
  1. KEYTRUDA [Suspect]
     Active Substance: PEMBROLIZUMAB
     Indication: HEPATIC CANCER
     Dosage: UNK, EVERY THREE WEEKS
     Route: 042
     Dates: start: 20160725

REACTIONS (2)
  - Malignant neoplasm progression [Fatal]
  - Product use issue [Unknown]

NARRATIVE: CASE EVENT DATE: 201607
